FAERS Safety Report 20467939 (Version 1)
Quarter: 2022Q1

REPORT INFORMATION
  Report Type: Spontaneous
  Country: CN (occurrence: None)
  Receive Date: 20220214
  Receipt Date: 20220214
  Transmission Date: 20220424
  Serious: Yes (Hospitalization)
  Sender: FDA-Public Use
  Company Number: CN-ROCHE-3023180

PATIENT
  Age: 81 Year
  Sex: Female
  Weight: 60 kg

DRUGS (1)
  1. PERTUZUMAB [Suspect]
     Active Substance: PERTUZUMAB
     Indication: Hepatic cancer
     Route: 041
     Dates: start: 20211214

REACTIONS (2)
  - Myelosuppression [Recovering/Resolving]
  - Off label use [Unknown]

NARRATIVE: CASE EVENT DATE: 20211217
